FAERS Safety Report 8167092-8 (Version None)
Quarter: 2012Q1

REPORT INFORMATION
  Report Type: 
  Country: None (occurrence: None)
  Receive Date: 20120227
  Receipt Date: 20120222
  Transmission Date: 20120608
  Serious: Yes (Death, Hospitalization)
  Sender: FDA-Public Use
  Company Number: DE-JNJFOC-20120210600

PATIENT
  Age: 42 Year
  Sex: Male

DRUGS (10)
  1. RISPERDAL [Suspect]
     Route: 048
     Dates: start: 20111019, end: 20111019
  2. GLIANIMON [Suspect]
     Route: 048
     Dates: start: 20111020, end: 20111020
  3. GLIANIMON [Suspect]
     Route: 048
     Dates: start: 20111019, end: 20111019
  4. RISPERDAL CONSTA [Suspect]
     Route: 030
     Dates: end: 20111021
  5. GLIANIMON [Suspect]
     Indication: PRODUCT USED FOR UNKNOWN INDICATION
     Route: 048
     Dates: start: 20111021, end: 20111021
  6. GLIANIMON [Suspect]
     Route: 048
     Dates: start: 20111006, end: 20111018
  7. RISPERDAL [Suspect]
     Route: 048
     Dates: start: 20111020, end: 20111020
  8. ZOPICLON [Concomitant]
     Route: 048
     Dates: start: 20111006, end: 20111021
  9. RISPERDAL CONSTA [Suspect]
     Indication: PRODUCT USED FOR UNKNOWN INDICATION
     Route: 030
  10. RISPERDAL [Suspect]
     Indication: PRODUCT USED FOR UNKNOWN INDICATION
     Route: 048
     Dates: start: 20111006, end: 20111018

REACTIONS (2)
  - PSYCHOTIC DISORDER [None]
  - DEATH [None]
